FAERS Safety Report 10090317 (Version 1)
Quarter: 2014Q2

REPORT INFORMATION
  Report Type: Spontaneous
  Country: BR (occurrence: BR)
  Receive Date: 20140421
  Receipt Date: 20140421
  Transmission Date: 20141212
  Serious: Yes (Death)
  Sender: FDA-Public Use
  Company Number: PHHY2014BR045189

PATIENT
  Age: 51 Year
  Sex: Female

DRUGS (3)
  1. PREDNISONE [Suspect]
  2. OXYGEN THERAPY [Concomitant]
  3. ACITRETIN [Concomitant]
     Dosage: 25 MGMG/DAY

REACTIONS (3)
  - Infection [Fatal]
  - Acute respiratory failure [Fatal]
  - No therapeutic response [Unknown]
